FAERS Safety Report 12602697 (Version 8)
Quarter: 2018Q3

REPORT INFORMATION
  Report Type: Report from Study
  Country: CO (occurrence: CO)
  Receive Date: 20160728
  Receipt Date: 20180918
  Transmission Date: 20181010
  Serious: Yes (Hospitalization)
  Sender: FDA-Public Use
  Company Number: CO-PFIZER INC-2016356415

PATIENT
  Age: 76 Year
  Sex: Male
  Weight: 68.8 kg

DRUGS (1)
  1. TOFACITINIB CITRATE [Suspect]
     Active Substance: TOFACITINIB CITRATE
     Indication: RHEUMATOID ARTHRITIS
     Dosage: UNK, 2X/DAY (EVERY 12 HOURS)
     Route: 048
     Dates: start: 20151228

REACTIONS (4)
  - Cardiac failure [Recovered/Resolved]
  - Cardiac failure [Recovered/Resolved]
  - Urinary retention [Recovered/Resolved]
  - Cardiac failure [Recovered/Resolved]

NARRATIVE: CASE EVENT DATE: 20160711
